FAERS Safety Report 19965132 (Version 2)
Quarter: 2021Q4

REPORT INFORMATION
  Report Type: Report from Study
  Country: AU (occurrence: AU)
  Receive Date: 20211018
  Receipt Date: 20211130
  Transmission Date: 20220304
  Serious: Yes (Hospitalization)
  Sender: FDA-Public Use
  Company Number: AU-PFIZER INC-202101326004

PATIENT
  Age: 9 Year
  Sex: Male
  Weight: 38.3 kg

DRUGS (4)
  1. VINCRISTINE SULFATE [Suspect]
     Active Substance: VINCRISTINE SULFATE
     Indication: Rhabdomyosarcoma
     Dosage: 1.8 MG, CYCLIC
     Route: 042
     Dates: start: 20210908, end: 20210915
  2. TEMSIROLIMUS [Suspect]
     Active Substance: TEMSIROLIMUS
     Indication: Rhabdomyosarcoma
     Dosage: 18 MG, CYCLIC
     Route: 042
     Dates: start: 20210908, end: 20210908
  3. CYCLOPHOSPHAMIDE [Suspect]
     Active Substance: CYCLOPHOSPHAMIDE
     Indication: Rhabdomyosarcoma
     Dosage: 1460 MG, CYCLIC
     Route: 042
     Dates: start: 20210908, end: 20210908
  4. DACTINOMYCIN [Suspect]
     Active Substance: DACTINOMYCIN
     Indication: Rhabdomyosarcoma
     Dosage: 1.9 MG, CYCLIC
     Route: 042
     Dates: start: 20210908, end: 20210908

REACTIONS (2)
  - Wound dehiscence [Recovering/Resolving]
  - Wound infection staphylococcal [Recovering/Resolving]

NARRATIVE: CASE EVENT DATE: 20210915
